FAERS Safety Report 9153923 (Version 1)
Quarter: 2013Q1

REPORT INFORMATION
  Report Type: Spontaneous
  Country: US (occurrence: None)
  Receive Date: 20130206
  Receipt Date: 20130206
  Transmission Date: 20140127
  Serious: Yes (Other)
  Sender: FDA-Public Use
  Company Number: 001473238A

PATIENT
  Age: 77 Year
  Sex: Female

DRUGS (4)
  1. NATURAL ADVANTAGE SPF 15 ALL DAY MOISTURE WITH AHAS [Suspect]
     Dosage: ONCE DERMAL
     Dates: start: 20130122
  2. COUMADIN [Concomitant]
  3. BP MEDICATION [Concomitant]
  4. CHOLESTEROL MEDICATION [Concomitant]

REACTIONS (3)
  - Swelling face [None]
  - Eye swelling [None]
  - Urticaria [None]
